FAERS Safety Report 7869073 (Version 6)
Quarter: 2013Q2

REPORT INFORMATION
  Report Type: Spontaneous
  Country: US (occurrence: US)
  Receive Date: 20110324
  Receipt Date: 20130402
  Transmission Date: 20140414
  Serious: Yes (Hospitalization, Other)
  Sender: FDA-Public Use
  Company Number: US-BAYER-2011-023939

PATIENT
  Age: 30 Year
  Sex: Female
  Weight: 99 kg

DRUGS (6)
  1. YASMIN [Suspect]
     Dosage: UNK
     Route: 048
     Dates: start: 2002, end: 2008
  2. YASMIN [Suspect]
     Dosage: UNK
     Dates: start: 20031108, end: 20070729
  3. ADIPEX [Concomitant]
  4. PROTONIX [Concomitant]
     Dosage: 40 MG, ONE TABLET DAILY
     Route: 048
     Dates: start: 20080505
  5. MAXALT [Concomitant]
     Indication: HEADACHE
     Dosage: 5 MG, ONE TABLET AT ONSET OF HEADACHE
     Route: 048
     Dates: start: 20080702
  6. PROMETHAZINE [Concomitant]
     Dosage: 25 MG, ONE TABLET AS NEEDED
     Route: 048
     Dates: start: 20080811

REACTIONS (5)
  - Gallbladder disorder [None]
  - Cholelithiasis [None]
  - Injury [None]
  - General physical health deterioration [None]
  - Pain [None]
